FAERS Safety Report 16902326 (Version 2)
Quarter: 2019Q4

REPORT INFORMATION
  Report Type: Spontaneous
  Country: JP (occurrence: JP)
  Receive Date: 20191010
  Receipt Date: 20191108
  Transmission Date: 20200122
  Serious: Yes (Hospitalization)
  Sender: FDA-Public Use
  Company Number: JP-VIIV HEALTHCARE LIMITED-JP2019JPN181105

PATIENT
  Age: 53 Year
  Sex: Female
  Weight: 50 kg

DRUGS (17)
  1. COMBIVIR [Suspect]
     Active Substance: LAMIVUDINE\ZIDOVUDINE
     Indication: ACQUIRED IMMUNODEFICIENCY SYNDROME
  2. CELECOX TABLETS [Concomitant]
     Dosage: UNK
     Dates: start: 20180923
  3. FENTOS TAPE [Concomitant]
     Active Substance: FENTANYL
     Dosage: 4 MG, UNK
     Dates: start: 20160706
  4. DEXALTIN ORAL OINTMENT [Concomitant]
     Dosage: UNK
     Dates: start: 20190206, end: 20190409
  5. HICEE GRANULES [Concomitant]
     Dosage: UNK
     Dates: end: 20190409
  6. HIRUDOID SOFT OINTMENT [Concomitant]
     Dosage: UNK
     Dates: start: 20190206, end: 20190409
  7. TIVICAY [Concomitant]
     Active Substance: DOLUTEGRAVIR SODIUM
     Dosage: UNK
     Dates: start: 20150114
  8. FENTOS TAPE [Concomitant]
     Active Substance: FENTANYL
     Dosage: 8 MG, UNK
  9. SYMPROIC [Concomitant]
     Active Substance: NALDEMEDINE
     Dosage: UNK
     Dates: start: 20171011, end: 20190409
  10. COMBIVIR [Suspect]
     Active Substance: LAMIVUDINE\ZIDOVUDINE
     Indication: HIV INFECTION
     Dosage: 1 DF, BID
     Route: 048
     Dates: start: 20081015, end: 20190409
  11. L CARTIN FF TABLETS [Concomitant]
     Dosage: UNK
  12. ZINC OXIDE OINTMENT [Concomitant]
     Dosage: UNK
     Dates: start: 20190206, end: 20190409
  13. LORATADINE OD TABLETS [Concomitant]
     Dosage: UNK
     Dates: start: 20180307
  14. DESCOVY [Concomitant]
     Active Substance: EMTRICITABINE\TENOFOVIR ALAFENAMIDE FUMARATE
     Dosage: UNK
     Dates: start: 20190410
  15. HIRUDOID LOTION [Concomitant]
     Dosage: UNK
     Dates: start: 20180509, end: 20190409
  16. MOHRUS TAPE L [Concomitant]
     Active Substance: KETOPROFEN
     Dosage: UNK
     Dates: start: 20170802, end: 20190409
  17. PARIET TABLET [Concomitant]
     Dosage: UNK
     Dates: start: 20180929

REACTIONS (5)
  - Dyspnoea [Unknown]
  - Anaemia [Recovering/Resolving]
  - Dyspnoea exertional [Unknown]
  - Oedema [Unknown]
  - Malaise [Unknown]

NARRATIVE: CASE EVENT DATE: 20190206
